FAERS Safety Report 16650599 (Version 1)
Quarter: 2019Q3

REPORT INFORMATION
  Report Type: Spontaneous
  Country: US (occurrence: US)
  Receive Date: 20190617
  Receipt Date: 20190617
  Transmission Date: 20191004
  Serious: Yes (Hospitalization)
  Sender: FDA-Public Use
  Company Number: None

PATIENT
  Age: 60 Year
  Sex: Female

DRUGS (16)
  1. OCALIVA [Suspect]
     Active Substance: OBETICHOLIC ACID
     Indication: PRIMARY BILIARY CHOLANGITIS
     Route: 048
     Dates: start: 20170302
  2. PILOCARPINE. [Concomitant]
     Active Substance: PILOCARPINE
  3. URSODIOL. [Concomitant]
     Active Substance: URSODIOL
  4. TYLENOL [Concomitant]
     Active Substance: ACETAMINOPHEN
  5. CLOPIDOGREL [Concomitant]
     Active Substance: CLOPIDOGREL BISULFATE
  6. VITAMIN D3 [Concomitant]
     Active Substance: CHOLECALCIFEROL
  7. SYMBICORT AER [Concomitant]
  8. BACLOFEN. [Concomitant]
     Active Substance: BACLOFEN
  9. CARTIA XT [Concomitant]
     Active Substance: DILTIAZEM HYDROCHLORIDE
  10. OMEPRAZOLE. [Concomitant]
     Active Substance: OMEPRAZOLE
  11. ALBUMIN-ZLB SOL [Concomitant]
  12. MELOXICAM. [Concomitant]
     Active Substance: MELOXICAM
  13. IRON SLOW [Concomitant]
  14. VIRTUSSIN AC SOL [Concomitant]
  15. METOPROL SUC [Concomitant]
  16. PREDNISONE. [Concomitant]
     Active Substance: PREDNISONE

REACTIONS (1)
  - Lower limb fracture [None]

NARRATIVE: CASE EVENT DATE: 20190614
